FAERS Safety Report 9026265 (Version 1)
Quarter: 2013Q1

REPORT INFORMATION
  Report Type: Spontaneous
  Country: IN (occurrence: None)
  Receive Date: 20130104
  Receipt Date: 20130104
  Transmission Date: 20140127
  Serious: Yes (Hospitalization, Other)
  Sender: FDA-Public Use
  Company Number: 2012P1068329

PATIENT
  Age: 28 Year
  Sex: Male

DRUGS (1)
  1. PHENYTOIN [Suspect]
     Indication: EPILEPSY

REACTIONS (14)
  - Social avoidant behaviour [None]
  - Aggression [None]
  - Aggression [None]
  - Memory impairment [None]
  - Anxiety [None]
  - Psychiatric symptom [None]
  - Depressed mood [None]
  - Suspiciousness [None]
  - Suicidal behaviour [None]
  - Cognitive disorder [None]
  - Toxicity to various agents [None]
  - Anticonvulsant drug level above therapeutic [None]
  - Grand mal convulsion [None]
  - Educational problem [None]
